FAERS Safety Report 5351083-6 (Version None)
Quarter: 2007Q2

REPORT INFORMATION
  Report Type: 
  Country: None (occurrence: None)
  Receive Date: 20070608
  Receipt Date: 20061221
  Transmission Date: 20071010
  Serious: Yes (Other)
  Sender: FDA-Public Use
  Company Number: US-PFIZER INC-2007000189

PATIENT
  Sex: Female

DRUGS (1)
  1. LIPITOR [Suspect]

REACTIONS (4)
  - BLOOD CHOLESTEROL INCREASED [None]
  - CAROTID ARTERIOSCLEROSIS [None]
  - JOINT STIFFNESS [None]
  - LIVER FUNCTION TEST ABNORMAL [None]
